FAERS Safety Report 20818498 (Version 1)
Quarter: 2022Q2

REPORT INFORMATION
  Report Type: Spontaneous
  Country: US (occurrence: US)
  Receive Date: 20220512
  Receipt Date: 20220512
  Transmission Date: 20220720
  Serious: No
  Sender: FDA-Public Use
  Company Number: US-PFIZER INC-202200148433

PATIENT
  Age: 58 Year
  Sex: Female

DRUGS (1)
  1. XELJANZ XR [Suspect]
     Active Substance: TOFACITINIB CITRATE
     Indication: Rheumatoid arthritis
     Dosage: 11 MG, DAILY
     Route: 048
     Dates: start: 20211130

REACTIONS (7)
  - Product dose omission issue [Unknown]
  - Illness [Unknown]
  - Memory impairment [Unknown]
  - Glossodynia [Unknown]
  - Stomatitis [Not Recovered/Not Resolved]
  - Pain [Unknown]
  - Swelling [Unknown]
